FAERS Safety Report 13822049 (Version 1)
Quarter: 2017Q3

REPORT INFORMATION
  Report Type: Spontaneous
  Country: US (occurrence: US)
  Receive Date: 20170801
  Receipt Date: 20170801
  Transmission Date: 20171127
  Serious: Yes (Other)
  Sender: FDA-Public Use
  Company Number: None

PATIENT
  Age: 75 Year
  Sex: Male
  Weight: 90.8 kg

DRUGS (11)
  1. IMODIUM [Concomitant]
     Active Substance: LOPERAMIDE HYDROCHLORIDE
  2. VB [Concomitant]
  3. CALCIUM [Concomitant]
     Active Substance: CALCIUM
  4. ZINC. [Concomitant]
     Active Substance: ZINC
  5. FOLIC ACID. [Concomitant]
     Active Substance: FOLIC ACID
  6. LOW DOS ASPRIN [Concomitant]
  7. CHOLESTYRAMINE. [Suspect]
     Active Substance: CHOLESTYRAMINE
     Indication: DIARRHOEA
     Dosage: BY DR ORDERS 2 MIXED WITH OJ
     Route: 048
     Dates: start: 20170428, end: 20170625
  8. PROBIOTIC [Concomitant]
     Active Substance: PROBIOTICS NOS
  9. SIMVASTATIN. [Concomitant]
     Active Substance: SIMVASTATIN
  10. POTASSIUM [Concomitant]
     Active Substance: POTASSIUM
  11. MAGNESIUM [Concomitant]
     Active Substance: MAGNESIUM

REACTIONS (3)
  - Joint swelling [None]
  - Abdominal distension [None]
  - Peripheral swelling [None]

NARRATIVE: CASE EVENT DATE: 20170510
